FAERS Safety Report 19074458 (Version 1)
Quarter: 2021Q1

REPORT INFORMATION
  Report Type: Spontaneous
  Country: FR (occurrence: FR)
  Receive Date: 20210330
  Receipt Date: 20210330
  Transmission Date: 20210420
  Serious: Yes (Hospitalization)
  Sender: FDA-Public Use
  Company Number: FR-PFIZER INC-2021309256

PATIENT
  Age: 21 Year
  Sex: Female

DRUGS (6)
  1. AMIKACINE [AMIKACIN SULFATE] [Suspect]
     Active Substance: AMIKACIN SULFATE
     Indication: INFECTION
     Dosage: 1950 MG, 1X/DAY
     Route: 042
     Dates: start: 20210208, end: 20210210
  2. PRIMPERAN [Suspect]
     Active Substance: METOCLOPRAMIDE HYDROCHLORIDE
     Indication: VOMITING
     Dosage: 30 MG, DAILY
     Route: 042
     Dates: start: 20210210, end: 20210211
  3. LOVENOX [Suspect]
     Active Substance: ENOXAPARIN SODIUM
     Indication: THROMBOSIS PROPHYLAXIS
     Dosage: 4000 IU, 1X/DAY
     Route: 030
     Dates: start: 20210127, end: 20210215
  4. TIENAM [Suspect]
     Active Substance: CILASTATIN SODIUM\IMIPENEM
     Indication: INFECTION
     Dosage: 2000 MG, 1X/DAY
     Route: 042
     Dates: start: 20210209, end: 20210222
  5. EFFEXOR LP [Suspect]
     Active Substance: VENLAFAXINE HYDROCHLORIDE
     Indication: PAIN
     Dosage: 112.5 MG, 1X/DAY
     Route: 048
     Dates: start: 20200616
  6. LYRICA [Suspect]
     Active Substance: PREGABALIN
     Indication: PAIN
     Dosage: 250 MG, 1X/DAY
     Route: 042
     Dates: start: 20210127

REACTIONS (3)
  - Vision blurred [Recovered/Resolved]
  - Off label use [Unknown]
  - Oculogyric crisis [Recovered/Resolved]

NARRATIVE: CASE EVENT DATE: 20200616
